FAERS Safety Report 5318765-3 (Version None)
Quarter: 2007Q2

REPORT INFORMATION
  Report Type: 
  Country: None (occurrence: None)
  Receive Date: 20070504
  Receipt Date: 20070504
  Transmission Date: 20071010
  Serious: Yes (Hospitalization)
  Sender: FDA-Public Use
  Company Number: None

PATIENT
  Age: 51 Year
  Sex: Female
  Weight: 117.9352 kg

DRUGS (7)
  1. WARFARIN SODIUM [Suspect]
     Indication: CEREBROVASCULAR ACCIDENT PROPHYLAXIS
     Dosage: 7.5 MG ORALLY DAILY 10 DAYS TO 2 WEEKS PRIOR TO HOSPITALIZATION
     Route: 048
  2. ALTACE [Concomitant]
  3. UNIVASC [Concomitant]
  4. LOZOL [Concomitant]
  5. CYMBALTA [Concomitant]
  6. MOBIC [Concomitant]
  7. LIPITOR [Concomitant]

REACTIONS (3)
  - CONTUSION [None]
  - INTERNATIONAL NORMALISED RATIO INCREASED [None]
  - PHARMACEUTICAL PRODUCT COMPLAINT [None]
